FAERS Safety Report 24286883 (Version 2)
Quarter: 2024Q3

REPORT INFORMATION
  Report Type: Report from Study
  Country: EE (occurrence: EE)
  Receive Date: 20240905
  Receipt Date: 20240906
  Transmission Date: 20241017
  Serious: Yes (Other)
  Sender: NOVARTIS
  Company Number: EE-002147023-NVSC2024EE123253

PATIENT
  Age: 8 Year
  Sex: Male

DRUGS (5)
  1. MEKINIST [Suspect]
     Active Substance: TRAMETINIB DIMETHYL SULFOXIDE
     Indication: Astrocytoma
     Dosage: 0.75 MG, QD
     Route: 048
  2. MEKINIST [Suspect]
     Active Substance: TRAMETINIB DIMETHYL SULFOXIDE
     Indication: BRAF gene mutation
     Dosage: 0.75 MG, QD
     Route: 048
     Dates: start: 202304
  3. MEKINIST [Suspect]
     Active Substance: TRAMETINIB DIMETHYL SULFOXIDE
     Dosage: UNKNOWN, QD (STRENGTH:0.025 MG/KG)
     Route: 048
     Dates: start: 20230626
  4. TAFINLAR [Suspect]
     Active Substance: DABRAFENIB MESYLATE
     Indication: Astrocytoma
     Dosage: 80 MG, QD
     Route: 048
  5. TAFINLAR [Suspect]
     Active Substance: DABRAFENIB MESYLATE
     Indication: BRAF gene mutation
     Dosage: 100 MG, BID (STRENGTH: 5.25 MG/KG)
     Route: 048
     Dates: start: 20230626

REACTIONS (6)
  - Middle ear inflammation [Recovered/Resolved with Sequelae]
  - Otitis media [Recovered/Resolved with Sequelae]
  - Weight increased [Not Recovered/Not Resolved]
  - Ingrowing nail [Recovered/Resolved]
  - Rash [Recovered/Resolved]
  - Headache [Recovered/Resolved]

NARRATIVE: CASE EVENT DATE: 20230501
